FAERS Safety Report 5699940-5 (Version None)
Quarter: 2008Q2

REPORT INFORMATION
  Report Type: 
  Country: None (occurrence: None)
  Receive Date: 20080410
  Receipt Date: 20080404
  Transmission Date: 20081010
  Serious: Yes (Death, Life-Threatening, Disabling)
  Sender: FDA-Public Use
  Company Number: US-MERCK-0803USA04781

PATIENT
  Age: 9 Year
  Sex: Male
  Weight: 54 kg

DRUGS (8)
  1. SINGULAIR [Suspect]
     Indication: HYPERSENSITIVITY
     Route: 048
     Dates: start: 20060519, end: 20080130
  2. SINGULAIR [Suspect]
     Indication: ASTHMA
     Route: 048
     Dates: start: 20060519, end: 20080130
  3. [THERAPY UNSPECIFIED] [Concomitant]
  4. SINGULAIR [Suspect]
     Route: 048
     Dates: start: 20030721, end: 20060501
  5. SINGULAIR [Suspect]
     Route: 048
     Dates: start: 20030721, end: 20060501
  6. ALLEGRA [Concomitant]
     Indication: RHINITIS ALLERGIC
     Route: 048
  7. FLONASE [Concomitant]
     Route: 065
  8. ALBUTEROL [Concomitant]
     Indication: ASTHMA
     Route: 065

REACTIONS (5)
  - ANGER [None]
  - BRONCHITIS [None]
  - COMPLETED SUICIDE [None]
  - DEPRESSED MOOD [None]
  - OVERDOSE [None]
